FAERS Safety Report 9103088 (Version 1)
Quarter: 2013Q1

REPORT INFORMATION
  Report Type: Spontaneous
  Country: AR (occurrence: None)
  Receive Date: 20130125
  Receipt Date: 20130125
  Transmission Date: 20140127
  Serious: Yes (Death, Hospitalization, Other)
  Sender: FDA-Public Use
  Company Number: 2013P1000976

PATIENT
  Age: 27 Year
  Sex: Female

DRUGS (8)
  1. ETHAMBUTOL [Suspect]
     Indication: PERITONEAL TUBERCULOSIS
  2. ETHAMBUTOL [Suspect]
     Indication: PULMONARY TUBERCULOSIS
  3. ISONIAZID [Suspect]
     Indication: PULMONARY TUBERCULOSIS
  4. ISONIAZID [Suspect]
     Indication: PERITONEAL TUBERCULOSIS
  5. RIFAMPICIN [Suspect]
     Indication: PULMONARY TUBERCULOSIS
  6. RIFAMPICIN [Suspect]
     Indication: PERITONEAL TUBERCULOSIS
  7. PYRAZINAMIDE [Suspect]
     Indication: PERITONEAL TUBERCULOSIS
  8. PYRAZINAMIDE [Suspect]
     Indication: PULMONARY TUBERCULOSIS

REACTIONS (5)
  - Hepatitis toxic [None]
  - Eosinophilia [None]
  - Drug reaction with eosinophilia and systemic symptoms [None]
  - Multi-organ failure [None]
  - Drug reaction with eosinophilia and systemic symptoms [None]
